FAERS Safety Report 21304489 (Version 1)
Quarter: 2022Q3

REPORT INFORMATION
  Report Type: Spontaneous
  Country: US (occurrence: None)
  Receive Date: 20220907
  Receipt Date: 20220907
  Transmission Date: 20221027
  Serious: No
  Sender: FDA-Public Use
  Company Number: US-ARIS GLOBAL-202108-1431

PATIENT
  Sex: Female

DRUGS (12)
  1. OXERVATE [Suspect]
     Active Substance: CENEGERMIN-BKBJ
     Indication: Neurotrophic keratopathy
     Route: 047
     Dates: start: 20210407
  2. CARVEDILOL [Concomitant]
     Active Substance: CARVEDILOL
  3. GLIPIZIDE\METFORMIN HYDROCHLORIDE [Concomitant]
     Active Substance: GLIPIZIDE\METFORMIN HYDROCHLORIDE
     Dosage: 2.5-250 MG
  4. GABAPENTIN [Concomitant]
     Active Substance: GABAPENTIN
  5. REFRESH CLASSIC [Concomitant]
     Active Substance: POLYVINYL ALCOHOL\POVIDONE
  6. HYDRALAZINE HYDROCHLORIDE [Concomitant]
     Active Substance: HYDRALAZINE HYDROCHLORIDE
  7. VITAMIN D-400 [Concomitant]
  8. FERROUS SULFATE [Concomitant]
     Active Substance: FERROUS SULFATE
  9. VITAMINS [Concomitant]
     Active Substance: VITAMINS
     Dosage: 50 PLUS TABLET
  10. VITAMIN B12 [Concomitant]
     Active Substance: CYANOCOBALAMIN
  11. LISINOPRIL [Concomitant]
     Active Substance: LISINOPRIL
  12. ATORVASTATIN CALCIUM [Concomitant]
     Active Substance: ATORVASTATIN CALCIUM

REACTIONS (6)
  - Eye irritation [Unknown]
  - Eye injury [Unknown]
  - Eye pain [Unknown]
  - Eye pruritus [Unknown]
  - Eye swelling [Unknown]
  - Eye infection [Unknown]
